FAERS Safety Report 11183515 (Version 2)
Quarter: 2015Q2

REPORT INFORMATION
  Report Type: Spontaneous
  Country: US (occurrence: US)
  Receive Date: 20150612
  Receipt Date: 20150615
  Transmission Date: 20150821
  Serious: No
  Sender: FDA-Public Use
  Company Number: US-LEO PHARMA-234677

PATIENT
  Sex: Female

DRUGS (2)
  1. LEVOTHYROXINE [Concomitant]
     Active Substance: LEVOTHYROXINE
     Indication: HYPOTHYROIDISM
  2. PICATO [Suspect]
     Active Substance: INGENOL MEBUTATE
     Indication: ACTINIC KERATOSIS
     Dates: start: 20150520, end: 20150522

REACTIONS (7)
  - Drug administered at inappropriate site [Unknown]
  - Cold sweat [Recovered/Resolved]
  - Application site erythema [Recovering/Resolving]
  - Nausea [Recovered/Resolved]
  - Application site scab [Recovered/Resolved]
  - Application site exfoliation [Recovered/Resolved]
  - Periorbital oedema [Recovering/Resolving]
